FAERS Safety Report 16885934 (Version 1)
Quarter: 2019Q4

REPORT INFORMATION
  Report Type: Report from Study
  Country: US (occurrence: US)
  Receive Date: 20191004
  Receipt Date: 20191004
  Transmission Date: 20200122
  Serious: Yes (Death)
  Sender: FDA-Public Use
  Company Number: US-PFIZER INC-2019428217

PATIENT
  Sex: Female

DRUGS (2)
  1. CARBOPLATIN. [Suspect]
     Active Substance: CARBOPLATIN
     Indication: OVARIAN CANCER
     Dosage: UNK, CYCLIC (AUC 6, ON DAY 1 OF THE CYCLE, FOR SIX CYCLES)
     Route: 042
  2. PACLITAXEL. [Suspect]
     Active Substance: PACLITAXEL
     Indication: OVARIAN CANCER
     Dosage: 80 MG/M2, (OVER A PERIOD OF 1 HOUR ON DAYS 1, 8 AND 15 OF A 21-DAY CYCLE)
     Route: 042

REACTIONS (1)
  - Ventricular fibrillation [Fatal]
